FAERS Safety Report 11688929 (Version 1)
Quarter: 2015Q4

REPORT INFORMATION
  Report Type: Spontaneous
  Country: US (occurrence: None)
  Receive Date: 20151030
  Receipt Date: 20151030
  Transmission Date: 20160304
  Serious: No
  Sender: FDA-Public Use
  Company Number: None

PATIENT
  Age: 66 Year
  Sex: Female
  Weight: 61.24 kg

DRUGS (13)
  1. TRIE31E2.75E1.25 CREAM [Concomitant]
  2. OREGANO OIL [Concomitant]
  3. OMEGA-3 ACIDS [Concomitant]
     Active Substance: OMEGA-3 FATTY ACIDS
  4. D3 [Suspect]
     Active Substance: 25-HYDROXYCHOLECALCIFEROL, 5-TRANS-
  5. ALINIA [Suspect]
     Active Substance: NITAZOXANIDE
     Indication: ANTIBIOTIC THERAPY
     Route: 048
     Dates: start: 20151016
  6. CINNAMON. [Concomitant]
     Active Substance: CINNAMON
  7. GARLIC. [Concomitant]
     Active Substance: GARLIC
  8. PROGESTERONE SR [Concomitant]
  9. TESTOS CREAM [Concomitant]
  10. METFORMIN [Concomitant]
     Active Substance: METFORMIN HYDROCHLORIDE
  11. ALINIA [Suspect]
     Active Substance: NITAZOXANIDE
     Indication: BLASTOCYSTIS INFECTION
     Route: 048
     Dates: start: 20151016
  12. METRONIDAZOLE. [Concomitant]
     Active Substance: METRONIDAZOLE
  13. KELP [Concomitant]
     Active Substance: KELP

REACTIONS (10)
  - Gait disturbance [None]
  - Fall [None]
  - Middle insomnia [None]
  - Arthralgia [None]
  - Nasal congestion [None]
  - Muscle strain [None]
  - Disorientation [None]
  - Head injury [None]
  - Feeling abnormal [None]
  - Syncope [None]

NARRATIVE: CASE EVENT DATE: 20151016
